FAERS Safety Report 4586452-5 (Version None)
Quarter: 2005Q1

REPORT INFORMATION
  Report Type: 
  Country: None (occurrence: None)
  Receive Date: 20050218
  Receipt Date: 20050209
  Transmission Date: 20050727
  Serious: Yes (Hospitalization)
  Sender: FDA-Public Use
  Company Number: DE-JNJFOC-20041003178

PATIENT
  Age: 52 Year
  Sex: Female

DRUGS (8)
  1. INFLIXIMAB, RECOMBINANT [Suspect]
     Dosage: THIS WAS THE PATIENT'S 4TH INFUSION
     Route: 042
  2. INFLIXIMAB, RECOMBINANT [Suspect]
     Indication: RHEUMATOID ARTHRITIS
     Route: 042
  3. PREDNISOLONE [Concomitant]
     Route: 065
  4. DICLOFENAC [Concomitant]
     Route: 054
  5. NEXIUM [Concomitant]
     Route: 065
  6. CALCIMAGON-D3 [Concomitant]
     Route: 065
  7. CALCIMAGON-D3 [Concomitant]
     Route: 065
  8. METHOTREXATE [Concomitant]
     Dosage: 10

REACTIONS (1)
  - ANAPHYLACTIC SHOCK [None]
